FAERS Safety Report 22165365 (Version 2)
Quarter: 2023Q2

REPORT INFORMATION
  Report Type: Report from Study
  Country: MY (occurrence: MY)
  Receive Date: 20230403
  Receipt Date: 20230410
  Transmission Date: 20230722
  Serious: Yes (Death)
  Sender: FDA-Public Use
  Company Number: MY-002147023-NVSC2023MY075104

PATIENT
  Age: 4 Year
  Sex: Male
  Weight: 16.4 kg

DRUGS (2)
  1. DABRAFENIB [Suspect]
     Active Substance: DABRAFENIB
     Indication: Langerhans^ cell histiocytosis
     Dosage: 45 MG, BID (90 MG, QD)
     Route: 065
     Dates: start: 20201214
  2. DABRAFENIB [Suspect]
     Active Substance: DABRAFENIB
     Dosage: 45 MG, BID
     Route: 048
     Dates: start: 20201217

REACTIONS (3)
  - Pneumonia klebsiella [Fatal]
  - Sepsis [Fatal]
  - Hepatic failure [Fatal]

NARRATIVE: CASE EVENT DATE: 20230323
